FAERS Safety Report 11125127 (Version 2)
Quarter: 2015Q2

REPORT INFORMATION
  Report Type: Spontaneous
  Country: IT (occurrence: IT)
  Receive Date: 20150520
  Receipt Date: 20150527
  Transmission Date: 20150821
  Serious: Yes (Life-Threatening, Hospitalization)
  Sender: FDA-Public Use
  Company Number: IT-TEVA-563419ISR

PATIENT
  Age: 35 Year
  Sex: Female

DRUGS (4)
  1. AMPHOTERICIN B LIPOSOMAL [Suspect]
     Active Substance: AMPHOTERICIN B
     Indication: ZYGOMYCOSIS
     Dosage: 5 MG/KG DAILY;
     Route: 065
  2. CAPECITABINE. [Suspect]
     Active Substance: CAPECITABINE
     Indication: ADJUVANT THERAPY
     Route: 065
  3. TRASTUZUMAB [Suspect]
     Active Substance: TRASTUZUMAB
     Indication: ADJUVANT THERAPY
     Route: 065
  4. DOCETAXEL. [Suspect]
     Active Substance: DOCETAXEL
     Indication: ADJUVANT THERAPY
     Route: 065

REACTIONS (3)
  - Acute myeloid leukaemia [Recovered/Resolved]
  - Drug ineffective [Recovered/Resolved]
  - Zygomycosis [Recovered/Resolved]
